FAERS Safety Report 4701591-3 (Version None)
Quarter: 2005Q2

REPORT INFORMATION
  Report Type: 
  Country: None (occurrence: None)
  Receive Date: 20050628
  Receipt Date: 20050617
  Transmission Date: 20051028
  Serious: Yes (Disabling)
  Sender: FDA-Public Use
  Company Number: CR-BRISTOL-MYERS SQUIBB COMPANY-13008248

PATIENT
  Age: 34 Year
  Sex: Male
  Weight: 50 kg

DRUGS (3)
  1. VIDEX [Suspect]
     Indication: HIV INFECTION
     Route: 048
     Dates: start: 19990701, end: 20041129
  2. STAVUDINE [Concomitant]
  3. NELFINAVIR [Concomitant]

REACTIONS (5)
  - GYNAECOMASTIA [None]
  - HYPERLIPIDAEMIA [None]
  - LIVER DISORDER [None]
  - PORTAL HYPERTENSION [None]
  - VARICES OESOPHAGEAL [None]
